FAERS Safety Report 8460804-5 (Version None)
Quarter: 2012Q2

REPORT INFORMATION
  Report Type: 
  Country: None (occurrence: None)
  Receive Date: 20120624
  Receipt Date: 20120619
  Transmission Date: 20120825
  Serious: Yes (Other)
  Sender: FDA-Public Use
  Company Number: US-AMGEN-USASP2010008789

PATIENT
  Age: 50 Year
  Sex: Female
  Weight: 57.596 kg

DRUGS (6)
  1. ABRAXANE [Suspect]
     Indication: OVARIAN CANCER
  2. AVASTIN [Concomitant]
     Indication: OVARIAN CANCER
     Dosage: 507 MG, QWK
     Route: 042
     Dates: start: 20111207
  3. NEULASTA [Suspect]
     Dosage: 3 UNK, UNK
     Dates: start: 20101111
  4. CISPLATIN [Suspect]
     Indication: OVARIAN CANCER
  5. NEULASTA [Suspect]
     Indication: PRODUCT USED FOR UNKNOWN INDICATION
     Dosage: 60 MG, UNK
     Route: 058
     Dates: start: 20080101
  6. DOXEL                              /00639302/ [Concomitant]
     Indication: OVARIAN CANCER
     Dosage: 24 MG, QWK
     Route: 042
     Dates: start: 20121004

REACTIONS (6)
  - BONE PAIN [None]
  - INFLUENZA LIKE ILLNESS [None]
  - HEADACHE [None]
  - NAUSEA [None]
  - ASTHENIA [None]
  - LETHARGY [None]
